FAERS Safety Report 22917635 (Version 3)
Quarter: 2024Q2

REPORT INFORMATION
  Report Type: Spontaneous
  Country: US (occurrence: US)
  Receive Date: 20230907
  Receipt Date: 20240627
  Transmission Date: 20240715
  Serious: No
  Sender: FDA-Public Use
  Company Number: US-THERATECHNOLOGIES INC.-2023-THE-TES-000346

PATIENT

DRUGS (1)
  1. EGRIFTA SV [Suspect]
     Active Substance: TESAMORELIN ACETATE
     Indication: Lipodystrophy acquired
     Dosage: UNK, QD
     Route: 065
     Dates: start: 202305

REACTIONS (6)
  - Constipation [Unknown]
  - Arthralgia [Unknown]
  - Skin discharge [Unknown]
  - Pain in extremity [Unknown]
  - Product dose omission issue [Unknown]
  - Drug ineffective [Unknown]
